FAERS Safety Report 20853694 (Version 1)
Quarter: 2022Q2

REPORT INFORMATION
  Report Type: Spontaneous
  Country: NL (occurrence: NL)
  Receive Date: 20220520
  Receipt Date: 20220520
  Transmission Date: 20220721
  Serious: Yes (Other)
  Sender: FDA-Public Use
  Company Number: None

PATIENT
  Sex: Female
  Weight: 50 kg

DRUGS (4)
  1. LENALIDOMIDE [Suspect]
     Active Substance: LENALIDOMIDE
     Indication: Plasma cell myeloma
     Dosage: 10 MILLIGRAM DAILY; 1 X PER DAY 1 PIECE FOR 3 WEEKS, THEN STOP WEEK, LENALIDOMIDE CAPSULE 10MG / LEN
     Dates: start: 202106, end: 20220415
  2. ZOLEDRONIC ACID [Concomitant]
     Active Substance: ZOLEDRONIC ACID
     Dosage: INFUSION FLUID, 0.04 MG/ML (MILLIGRAMS PER MILLILITER), ZOLEDRONIC ACID INFVLST 0.04MG/ML / BRAND NA
  3. CHOLESTYRAMINE [Concomitant]
     Active Substance: CHOLESTYRAMINE
     Dosage: SACHET (POWDER), 4 G (GRAM),  BRAND NAME NOT SPECIFIED, THERAPY START DATE AND END DATE : ASKU
  4. VALACYCLOVIR HYDROCHLORIDE [Concomitant]
     Active Substance: VALACYCLOVIR HYDROCHLORIDE
     Dosage: 500 MG (MILLIGRAM),  BRAND NAME NOT SPECIFIED, THERAPY START DATE AND END DATE : ASKU

REACTIONS (5)
  - Neuropathy peripheral [Recovering/Resolving]
  - Diarrhoea [Recovered/Resolved]
  - Therapeutic response unexpected [Unknown]
  - Abdominal pain [Recovered/Resolved]
  - Nausea [Recovered/Resolved]
